FAERS Safety Report 6446592-2 (Version None)
Quarter: 2009Q4

REPORT INFORMATION
  Report Type: 
  Country: None (occurrence: None)
  Receive Date: 20091119
  Receipt Date: 20091111
  Transmission Date: 20100525
  Serious: Yes (Disabling)
  Sender: FDA-Public Use
  Company Number: B0604076A

PATIENT
  Age: 43 Year
  Sex: Female

DRUGS (2)
  1. HEPATITIS B VACCINE [Suspect]
     Indication: PROPHYLAXIS
     Route: 065
     Dates: start: 19890101, end: 19890101
  2. MODAFINIL [Suspect]
     Indication: DRUG USE FOR UNKNOWN INDICATION
     Route: 065

REACTIONS (5)
  - ARTHRALGIA [None]
  - ASTHENIA [None]
  - COGNITIVE DISORDER [None]
  - MUSCLE DISORDER [None]
  - MYOFASCITIS [None]
